FAERS Safety Report 5221805-3 (Version None)
Quarter: 2007Q1

REPORT INFORMATION
  Report Type: 
  Country: None (occurrence: None)
  Receive Date: 20070127
  Receipt Date: 20070118
  Transmission Date: 20070707
  Serious: Yes (Death)
  Sender: FDA-Public Use
  Company Number: S07-USA-00274-01

PATIENT
  Sex: Male

DRUGS (1)
  1. LEXAPRO [Suspect]
     Dates: start: 20041226, end: 20050115

REACTIONS (2)
  - COMPLETED SUICIDE [None]
  - GUN SHOT WOUND [None]
